FAERS Safety Report 6567326-7 (Version None)
Quarter: 2010Q1

REPORT INFORMATION
  Report Type: 
  Country: None (occurrence: None)
  Receive Date: 20100202
  Receipt Date: 20100120
  Transmission Date: 20100710
  Serious: Yes (Hospitalization)
  Sender: FDA-Public Use
  Company Number: PHHY2010AU03045

PATIENT
  Sex: Male

DRUGS (3)
  1. CLOZARIL [Suspect]
     Dosage: 850 MG, UNK
     Dates: start: 19960616
  2. CLOZARIL [Suspect]
     Dosage: UNK
     Dates: start: 20100119
  3. CLOZAPINE [Concomitant]

REACTIONS (1)
  - NON-SMALL CELL LUNG CANCER [None]
